FAERS Safety Report 21320746 (Version 1)
Quarter: 2022Q3

REPORT INFORMATION
  Report Type: Spontaneous
  Country: IT (occurrence: IT)
  Receive Date: 20220912
  Receipt Date: 20220912
  Transmission Date: 20221027
  Serious: Yes (Other)
  Sender: FDA-Public Use
  Company Number: IT-AUROBINDO-AUR-APL-2022-035710

PATIENT
  Age: 61 Year
  Sex: Female

DRUGS (5)
  1. LETROZOLE [Suspect]
     Active Substance: LETROZOLE
     Indication: Breast cancer metastatic
     Dosage: UNK
     Route: 065
     Dates: start: 200811
  2. LETROZOLE [Suspect]
     Active Substance: LETROZOLE
     Dosage: 2.5 MILLIGRAM, ONCE A DAY
     Route: 065
     Dates: start: 201710
  3. PALBOCICLIB [Suspect]
     Active Substance: PALBOCICLIB
     Indication: Breast cancer metastatic
     Dosage: 125 MILLIGRAM, ONCE A DAY IN 4 WEEK CYCLES
     Route: 048
     Dates: start: 201710
  4. PALBOCICLIB [Suspect]
     Active Substance: PALBOCICLIB
     Dosage: 100 MILLIGRAM, ONCE A DAY FOR 3 WEEKS
     Route: 048
     Dates: start: 201710
  5. PALBOCICLIB [Suspect]
     Active Substance: PALBOCICLIB
     Dosage: 75 MILLIGRAM, ONCE A DAY
     Route: 048
     Dates: start: 201905

REACTIONS (3)
  - Myelosuppression [Unknown]
  - Thrombocytopenia [Unknown]
  - Haematotoxicity [Unknown]

NARRATIVE: CASE EVENT DATE: 20171001
